FAERS Safety Report 20678286 (Version 5)
Quarter: 2022Q3

REPORT INFORMATION
  Report Type: Report from Study
  Country: US (occurrence: US)
  Receive Date: 20220406
  Receipt Date: 20220915
  Transmission Date: 20221026
  Serious: Yes (Hospitalization)
  Sender: FDA-Public Use
  Company Number: US-HORIZON THERAPEUTICS-HZN-2021-002159

PATIENT

DRUGS (13)
  1. VIMOVO [Suspect]
     Active Substance: ESOMEPRAZOLE MAGNESIUM\NAPROXEN
     Indication: Osteoarthritis
     Dosage: 1 DOSAGE FORM, BID (500MG/20MG, 1 ORALLY TWICE A DAY AS NEEDED)
     Route: 048
  2. AMLODIPINE [Concomitant]
     Active Substance: AMLODIPINE BESYLATE
     Indication: Hypertension
     Dosage: 5 MG, QD
     Route: 065
  3. AMLODIPINE [Concomitant]
     Active Substance: AMLODIPINE BESYLATE
     Dosage: 10 MG, QD
     Route: 065
  4. CELEXA [Concomitant]
     Active Substance: CITALOPRAM HYDROBROMIDE
     Indication: Depression
  5. HYGROTEN [Concomitant]
     Indication: Product used for unknown indication
     Dosage: 25 MG, QD (EVERY MORNING)
     Route: 048
     Dates: start: 20220720, end: 20220918
  6. ALBUTEROL SULFATE [Concomitant]
     Active Substance: ALBUTEROL SULFATE
     Indication: Product used for unknown indication
     Dosage: 2 PUFFS INTO LUNGS EVERY 4 HOURS
     Dates: start: 20200408, end: 20220527
  7. NORVASC [Concomitant]
     Active Substance: AMLODIPINE BESYLATE
     Indication: Product used for unknown indication
     Dosage: 5 MG, BID
     Route: 048
     Dates: start: 20220719, end: 20220805
  8. ZYRTEC [Concomitant]
     Active Substance: CETIRIZINE HYDROCHLORIDE
     Indication: Product used for unknown indication
     Dosage: 10 MG, QD
     Route: 048
     Dates: start: 20220527, end: 20221123
  9. NEXIUM [Concomitant]
     Active Substance: ESOMEPRAZOLE MAGNESIUM
     Indication: Product used for unknown indication
     Dosage: UNK
     Route: 065
     Dates: start: 20220531, end: 20220720
  10. GABAPENTIN [Concomitant]
     Active Substance: GABAPENTIN
     Indication: Product used for unknown indication
     Dosage: 1 DOSAGE FORM, TID
     Route: 065
     Dates: start: 20220705
  11. NAPROSYN [Concomitant]
     Active Substance: NAPROXEN
     Indication: Product used for unknown indication
     Dosage: 500 MG, BID
     Route: 048
     Dates: start: 20220531, end: 20220720
  12. NICOTROL [Concomitant]
     Active Substance: NICOTINE
     Indication: Smoking cessation therapy
     Dosage: CONTINUOUSLY PUFF CONTENTS OF 1 CARTIRIDGE OVER 20 MINS AS NEEDED FOR SMOKING CESSATION
     Dates: start: 20220602
  13. COMMIT [Concomitant]
     Active Substance: NICOTINE
     Indication: Smoking cessation therapy
     Dosage: 1 LOZENGE (4MG) INSIDE CHEEK DAILY EVERY HOUR AS NEEDED FOR SMOKING CESSATION
     Route: 048

REACTIONS (17)
  - Gallbladder disorder [Unknown]
  - Cholelithiasis [Unknown]
  - Illness [Unknown]
  - Bone disorder [Unknown]
  - Quality of life decreased [Unknown]
  - Anxiety [Not Recovered/Not Resolved]
  - Vomiting [Unknown]
  - Abdominal distension [Unknown]
  - Pain [Unknown]
  - Gait disturbance [Unknown]
  - Dyspepsia [Unknown]
  - Nausea [Recovering/Resolving]
  - Blood pressure increased [Not Recovered/Not Resolved]
  - Pain in extremity [Unknown]
  - Sick relative [Unknown]
  - Arthritis [Unknown]
  - COVID-19 [Unknown]
